FAERS Safety Report 9179620 (Version 1)
Quarter: 2013Q1

REPORT INFORMATION
  Report Type: Spontaneous
  Country: US (occurrence: US)
  Receive Date: 20130321
  Receipt Date: 20130321
  Transmission Date: 20140127
  Serious: Yes (Death, Hospitalization, Other)
  Sender: FDA-Public Use
  Company Number: US-BAXTER-2013BAX009704

PATIENT
  Age: 0 Year
  Sex: Female

DRUGS (2)
  1. DIANEAL PD2 [Suspect]
     Indication: PERITONEAL DIALYSIS
     Route: 033
     Dates: end: 20130213
  2. DIANEAL PD2 (ULTRABAG) [Suspect]
     Indication: PERITONEAL DIALYSIS
     Route: 033
     Dates: end: 20130213

REACTIONS (6)
  - Cerebrovascular accident [Fatal]
  - Multimorbidity [Fatal]
  - Cardiac failure [Fatal]
  - Therapy cessation [Fatal]
  - Brain injury [Not Recovered/Not Resolved]
  - Pyrexia [Not Recovered/Not Resolved]
